FAERS Safety Report 5976722-8 (Version None)
Quarter: 2009Q1

REPORT INFORMATION
  Report Type: 
  Country: None (occurrence: None)
  Receive Date: 20081203
  Receipt Date: 20081125
  Transmission Date: 20090719
  Serious: Yes (Other)
  Sender: FDA-Public Use
  Company Number: FR-ALLERGAN-0812858US

PATIENT
  Sex: Female
  Weight: 50 kg

DRUGS (3)
  1. VISTABEL [Suspect]
     Indication: SKIN WRINKLING
     Dosage: 20 UNITS, SINGLE
     Route: 030
     Dates: start: 20080915, end: 20080915
  2. VISTABEL [Suspect]
     Dosage: UNK, SINGLE
     Route: 030
     Dates: start: 20080515, end: 20080515
  3. VISTABEL [Suspect]
     Dosage: UNK, SINGLE
     Route: 030

REACTIONS (1)
  - ANGIOEDEMA [None]
